FAERS Safety Report 6724053-0 (Version None)
Quarter: 2010Q2

REPORT INFORMATION
  Report Type: 
  Country: None (occurrence: None)
  Receive Date: 20100513
  Receipt Date: 20100507
  Transmission Date: 20101027
  Serious: Yes (Hospitalization)
  Sender: FDA-Public Use
  Company Number: B0651925A

PATIENT
  Age: 59 Year
  Sex: Male

DRUGS (9)
  1. DIGOXIN [Suspect]
     Dosage: 125MCG PER DAY
     Route: 048
  2. SPIRONOLACTONE [Concomitant]
     Dosage: 12.5MG PER DAY
  3. PERINDOPRIL [Concomitant]
     Dosage: 5MG PER DAY
  4. CARVEDILOL [Concomitant]
  5. FRUSEMIDE [Concomitant]
     Dosage: 80MG TWICE PER DAY
  6. ASPIRIN [Concomitant]
     Dosage: 100MG PER DAY
  7. WARFARIN SODIUM [Concomitant]
     Dosage: 6.5MG PER DAY
  8. MIXTARD HUMAN 70/30 [Concomitant]
  9. DARBEPOETIN ALFA [Concomitant]
     Dosage: 40MCG WEEKLY
     Route: 058

REACTIONS (11)
  - ABDOMINAL PAIN [None]
  - ANXIETY [None]
  - BLOOD CREATININE INCREASED [None]
  - DRUG LEVEL INCREASED [None]
  - DYSPNOEA [None]
  - HYPERKALAEMIA [None]
  - LETHARGY [None]
  - OEDEMA PERIPHERAL [None]
  - RENAL FAILURE [None]
  - THERAPEUTIC AGENT TOXICITY [None]
  - TRICUSPID VALVE INCOMPETENCE [None]
